FAERS Safety Report 5259239-8 (Version None)
Quarter: 2007Q1

REPORT INFORMATION
  Report Type: 
  Country: None (occurrence: None)
  Receive Date: 20070308
  Receipt Date: 20070226
  Transmission Date: 20070707
  Serious: Yes (Other)
  Sender: FDA-Public Use
  Company Number: GB-PFIZER INC-2007015648

PATIENT
  Sex: Male

DRUGS (1)
  1. TRANEXAMIC ACID (IV) [Suspect]
     Indication: GASTROINTESTINAL HAEMORRHAGE

REACTIONS (1)
  - GASTROINTESTINAL TUBE INSERTION [None]
